FAERS Safety Report 9343377 (Version 1)
Quarter: 2013Q2

REPORT INFORMATION
  Report Type: Spontaneous
  Country: KR (occurrence: KR)
  Receive Date: 20130612
  Receipt Date: 20130612
  Transmission Date: 20140414
  Serious: Yes (Death, Other)
  Sender: FDA-Public Use
  Company Number: KR-ACTELION-A-CH2013-84026

PATIENT
  Age: 45 Year
  Sex: Male

DRUGS (1)
  1. TRACLEER [Suspect]
     Indication: PULMONARY HYPERTENSION
     Dosage: 62.5 MG, BID
     Route: 048
     Dates: start: 2010, end: 201210

REACTIONS (6)
  - Death [Fatal]
  - Multi-organ failure [Unknown]
  - Cardiac failure [Unknown]
  - Hepatic failure [Unknown]
  - Oedema [Unknown]
  - Urine abnormality [Unknown]
